FAERS Safety Report 13244377 (Version 1)
Quarter: 2017Q1

REPORT INFORMATION
  Report Type: Spontaneous
  Country: US (occurrence: US)
  Receive Date: 20170216
  Receipt Date: 20170216
  Transmission Date: 20170428
  Serious: No
  Sender: FDA-Public Use
  Company Number: US-RELYPSA-RLY2016004614

PATIENT
  Age: 69 Year
  Sex: Male

DRUGS (16)
  1. MINOXIDIL. [Concomitant]
     Active Substance: MINOXIDIL
  2. NOVOLOG [Concomitant]
     Active Substance: INSULIN ASPART
  3. FUROSEMIDE. [Concomitant]
     Active Substance: FUROSEMIDE
  4. LOSARTAN. [Concomitant]
     Active Substance: LOSARTAN
  5. OMEPRAZOLE. [Concomitant]
     Active Substance: OMEPRAZOLE
  6. DONEPEZIL. [Concomitant]
     Active Substance: DONEPEZIL
  7. VELTASSA [Suspect]
     Active Substance: PATIROMER
     Indication: HYPERKALAEMIA
     Dosage: 8.4 G, QD
     Route: 048
     Dates: start: 20161208
  8. AMLODIPINE [Concomitant]
     Active Substance: AMLODIPINE BESYLATE
  9. ROSUVASTATIN. [Concomitant]
     Active Substance: ROSUVASTATIN
  10. FOLIC [Concomitant]
     Active Substance: FOLIC ACID
  11. CHLORTHALIDON [Concomitant]
  12. VICTOZA [Concomitant]
     Active Substance: LIRAGLUTIDE
  13. EDARBI [Concomitant]
     Active Substance: AZILSARTAN KAMEDOXOMIL
  14. LABETALOL [Concomitant]
     Active Substance: LABETALOL\LABETALOL HYDROCHLORIDE
  15. HYDRALAZINE [Concomitant]
     Active Substance: HYDRALAZINE HYDROCHLORIDE
  16. VITAMIN D3 [Concomitant]
     Active Substance: CHOLECALCIFEROL

REACTIONS (3)
  - Headache [Unknown]
  - Diarrhoea [Unknown]
  - Listless [Unknown]

NARRATIVE: CASE EVENT DATE: 20161212
